FAERS Safety Report 7417801-8 (Version None)
Quarter: 2011Q2

REPORT INFORMATION
  Report Type: 
  Country: None (occurrence: None)
  Receive Date: 20110412
  Receipt Date: 20110412
  Transmission Date: 20111010
  Serious: No
  Sender: FDA-Public Use
  Company Number: None

PATIENT
  Age: 73 Year
  Sex: Male
  Weight: 82 kg

DRUGS (1)
  1. TAMSULOSIN HCL [Suspect]
     Indication: BENIGN PROSTATIC HYPERPLASIA
     Dosage: 0.4 MG EVERY DAY PO
     Route: 048
     Dates: start: 20101206, end: 20110315

REACTIONS (6)
  - PRODUCT SUBSTITUTION ISSUE [None]
  - DYSPNOEA [None]
  - HYPERTENSION [None]
  - BLOOD PRESSURE INCREASED [None]
  - RESPIRATORY DEPRESSION [None]
  - PALPITATIONS [None]
